FAERS Safety Report 10080408 (Version 1)
Quarter: 2014Q2

REPORT INFORMATION
  Report Type: Report from Study
  Country: US (occurrence: US)
  Receive Date: 20140416
  Receipt Date: 20140416
  Transmission Date: 20141212
  Serious: Yes (Other)
  Sender: FDA-Public Use
  Company Number: US-ROCHE-1376835

PATIENT
  Sex: Female
  Weight: 56.75 kg

DRUGS (6)
  1. AVASTIN [Suspect]
     Indication: RETINAL VEIN OCCLUSION
     Dosage: IN RIGHT EYE STOPPED AFTER 3-4 INJECTIONS
     Route: 042
     Dates: start: 201207
  2. LUCENTIS [Suspect]
     Indication: RETINAL VEIN OCCLUSION
     Dosage: IN RIGHT EYE
     Route: 042
     Dates: start: 2012
  3. LOSARTAN/HCTZ [Concomitant]
     Indication: BLOOD PRESSURE
     Dosage: 50-12.5 MG
     Route: 048
     Dates: start: 201303
  4. LEVOTHYROXINE [Concomitant]
     Indication: HYPOTHYROIDISM
     Dosage: 10 YEARS AGO STARTED.
     Route: 048
  5. XANAX [Concomitant]
     Indication: STRESS
     Dosage: STARTED 10 YEARS AGO
     Route: 048
  6. XANAX [Concomitant]
     Indication: PANIC ATTACK

REACTIONS (6)
  - Ocular hyperaemia [Recovered/Resolved]
  - Eye discharge [Recovered/Resolved]
  - Eye pain [Recovered/Resolved]
  - Eye swelling [Recovered/Resolved]
  - Drug ineffective [Unknown]
  - Sensation of foreign body [Unknown]
